FAERS Safety Report 20771164 (Version 1)
Quarter: 2022Q2

REPORT INFORMATION
  Report Type: Spontaneous
  Country: US (occurrence: US)
  Receive Date: 20220429
  Receipt Date: 20220429
  Transmission Date: 20220721
  Serious: No
  Sender: FDA-Public Use
  Company Number: US-PFIZER INC-202100917066

PATIENT
  Age: 17 Year
  Sex: Male
  Weight: 129.73 kg

DRUGS (1)
  1. DEPO-TESTOSTERONE [Suspect]
     Active Substance: TESTOSTERONE CYPIONATE
     Indication: Klinefelter^s syndrome
     Dosage: UNK [200 EVERY 21 DAYS]

REACTIONS (3)
  - Off label use [Unknown]
  - Malabsorption from administration site [Unknown]
  - Obesity [Unknown]
